FAERS Safety Report 12851102 (Version 8)
Quarter: 2017Q1

REPORT INFORMATION
  Report Type: Report from Study
  Country: JP (occurrence: JP)
  Receive Date: 20161015
  Receipt Date: 20170124
  Transmission Date: 20170428
  Serious: Yes (Hospitalization)
  Sender: FDA-Public Use
  Company Number: JP-ROCHE-1840390

PATIENT
  Age: 72 Year
  Sex: Male
  Weight: 51.7 kg

DRUGS (34)
  1. METFORMIN HYDROCHLORIDE. [Concomitant]
     Active Substance: METFORMIN HYDROCHLORIDE
     Indication: DIABETES MELLITUS
     Route: 065
     Dates: end: 20161005
  2. NOVORAPID [Concomitant]
     Active Substance: INSULIN ASPART
     Indication: DIABETES MELLITUS
     Route: 065
     Dates: end: 20160930
  3. REPLAS [Concomitant]
     Active Substance: DEXTROSE\SODIUM CHLORIDE\SODIUM LACTATE
     Indication: NAUSEA
     Route: 065
     Dates: start: 20161002, end: 20161003
  4. CARBOPLATIN. [Suspect]
     Active Substance: CARBOPLATIN
     Indication: NON-SMALL CELL LUNG CANCER STAGE IV
     Dosage: ON 27/SEP/2016, HE RECEIVED THE MOST RECENT DOSE CARBOPLATIN 473 UNIT NOT REPORTED PRIOR TO EVENTS.
     Route: 042
     Dates: start: 20160927
  5. URSODEOXYCHOLIC ACID [Concomitant]
     Active Substance: URSODIOL
     Indication: HEPATIC FUNCTION ABNORMAL
     Route: 065
     Dates: end: 20161019
  6. AMBROXOL HYDROCHLORIDE [Concomitant]
     Active Substance: AMBROXOL HYDROCHLORIDE
     Indication: NON-SMALL CELL LUNG CANCER STAGE IV
     Dosage: SUSTAINED-RELEASE
     Route: 065
     Dates: start: 20160819, end: 20161019
  7. NEXIUM [Concomitant]
     Active Substance: ESOMEPRAZOLE MAGNESIUM
     Indication: PROPHYLAXIS
     Route: 065
     Dates: start: 20160819, end: 20161019
  8. PROCHLORPERAZINE MALEATE. [Concomitant]
     Active Substance: PROCHLORPERAZINE MALEATE
     Indication: NAUSEA
     Route: 065
     Dates: start: 20161011, end: 20161019
  9. PRAVASTATIN SODIUM. [Concomitant]
     Active Substance: PRAVASTATIN SODIUM
     Indication: DYSLIPIDAEMIA
     Route: 065
     Dates: end: 20161019
  10. FENTOS TAPE [Concomitant]
     Active Substance: FENTANYL
     Indication: CANCER PAIN
     Route: 065
     Dates: start: 20160819
  11. PANVITAN [Concomitant]
     Indication: PROPHYLAXIS
     Route: 065
     Dates: start: 20160921, end: 20161019
  12. MAGNESIUM OXIDE. [Concomitant]
     Active Substance: MAGNESIUM OXIDE
     Indication: PROPHYLAXIS
     Route: 065
     Dates: start: 20160926, end: 20161019
  13. SEROTONE [Concomitant]
     Active Substance: AZASETRON HYDROCHLORIDE
     Indication: NAUSEA
     Route: 065
     Dates: start: 20161001, end: 20161019
  14. AZUNOL OINTMENT [Concomitant]
     Indication: PENILE ERYTHEMA
     Route: 065
     Dates: start: 20160930, end: 20160930
  15. NEW LECICARBON [Concomitant]
     Active Substance: SODIUM BICARBONATE\SODIUM PHOSPHATE, MONOBASIC
     Indication: CONSTIPATION
     Route: 065
     Dates: start: 20161010
  16. DOMPERIDONE [Concomitant]
     Active Substance: DOMPERIDONE
     Indication: PROPHYLAXIS
     Route: 065
     Dates: start: 20160927, end: 20161019
  17. FRUCTLACT [Concomitant]
     Indication: NAUSEA
     Route: 065
     Dates: start: 20161005, end: 20161007
  18. LEVOFLOXACIN. [Concomitant]
     Active Substance: LEVOFLOXACIN
     Indication: PROPHYLAXIS
     Route: 065
     Dates: start: 20161005, end: 20161019
  19. ATEZOLIZUMAB [Suspect]
     Active Substance: ATEZOLIZUMAB
     Indication: NON-SMALL CELL LUNG CANCER STAGE IV
     Dosage: ON 27/SEP/2016, HE RECEIVED THE MOST RECENT DOSE ATEZOLIZUMAB 1200 MG (UNIT AS PER STUDY PROTOCOL) P
     Route: 042
     Dates: start: 20160927
  20. KARY UNI [Concomitant]
     Active Substance: PIRENOXINE
     Indication: CATARACT
     Route: 047
     Dates: end: 20161019
  21. LOXOPROFEN SODIUM HYDRATE [Concomitant]
     Active Substance: LOXOPROFEN SODIUM DIHYDRATE
     Indication: CANCER PAIN
  22. LEVOFLOXACIN. [Concomitant]
     Active Substance: LEVOFLOXACIN
     Indication: PROPHYLAXIS
     Route: 065
     Dates: start: 20161005, end: 20161019
  23. AZUNOL GARGLE [Concomitant]
     Indication: STOMATITIS
     Route: 065
     Dates: start: 20161005, end: 20161005
  24. GRANISETRON [Concomitant]
     Active Substance: GRANISETRON
     Indication: PROPHYLAXIS
     Route: 065
     Dates: start: 20160927, end: 20160927
  25. POTACOL R [Concomitant]
     Indication: PROPHYLAXIS
     Route: 065
     Dates: start: 20161008, end: 20161009
  26. PEMETREXED [Suspect]
     Active Substance: PEMETREXED
     Indication: NON-SMALL CELL LUNG CANCER STAGE IV
     Dosage: ON 27/SEP/2016, HE RECEIVED THE MOST RECENT DOSE PEMETREXED 800 UNIT NOT REPORTED PRIOR TO EVENTS.?S
     Route: 042
     Dates: start: 20160927
  27. TAKELDA [Concomitant]
     Active Substance: ASPIRIN\LANSOPRAZOLE
     Indication: ANGINA PECTORIS
     Route: 065
     Dates: end: 20161019
  28. OXINORM (JAPAN) [Concomitant]
     Active Substance: OXYCODONE HYDROCHLORIDE
     Indication: CANCER PAIN
     Route: 065
     Dates: start: 20160819
  29. FRUCTLACT [Concomitant]
     Indication: PROPHYLAXIS
     Route: 065
     Dates: start: 20161019, end: 20161019
  30. REPLAS [Concomitant]
     Active Substance: DEXTROSE\SODIUM CHLORIDE\SODIUM LACTATE
     Indication: PROPHYLAXIS
     Route: 065
     Dates: start: 20161008, end: 20161009
  31. SENNOSIDE [Concomitant]
     Active Substance: SENNOSIDES
     Indication: CONSTIPATION
     Route: 065
     Dates: start: 20161008, end: 20161010
  32. BASEN (JAPAN) [Concomitant]
     Indication: DIABETES MELLITUS
     Route: 065
     Dates: end: 20161005
  33. TULOBUTEROL [Concomitant]
     Active Substance: TULOBUTEROL
     Indication: NON-SMALL CELL LUNG CANCER STAGE IV
     Route: 065
     Dates: start: 20160819
  34. GLUCOSE [Concomitant]
     Active Substance: DEXTROSE
     Indication: DIABETES MELLITUS
     Route: 065
     Dates: start: 20160927, end: 20160929

REACTIONS (2)
  - Pneumonia aspiration [Recovering/Resolving]
  - Bone marrow failure [Recovered/Resolved]

NARRATIVE: CASE EVENT DATE: 20161003
